FAERS Safety Report 5885831-3 (Version None)
Quarter: 2008Q3

REPORT INFORMATION
  Report Type: 
  Country: None (occurrence: None)
  Receive Date: 20080917
  Receipt Date: 20080912
  Transmission Date: 20090109
  Serious: Yes (Other)
  Sender: FDA-Public Use
  Company Number: US-BRISTOL-MYERS SQUIBB COMPANY-14334478

PATIENT
  Age: 53 Year
  Sex: Female

DRUGS (2)
  1. DESYREL [Suspect]
  2. STADOL [Suspect]
     Indication: PAIN

REACTIONS (3)
  - DEPENDENCE [None]
  - EUPHORIC MOOD [None]
  - FEELING DRUNK [None]
